FAERS Safety Report 21923672 (Version 2)
Quarter: 2023Q1

REPORT INFORMATION
  Report Type: Report from Study
  Country: US (occurrence: US)
  Receive Date: 20230130
  Receipt Date: 20230307
  Transmission Date: 20230417
  Serious: Yes (Other)
  Sender: FDA-Public Use
  Company Number: US-ABBVIE-4263699

PATIENT
  Age: 53 Year
  Sex: Female

DRUGS (3)
  1. SKYRIZI [Suspect]
     Active Substance: RISANKIZUMAB-RZAA
     Indication: Psoriasis
     Dosage: WEEK 0
     Route: 058
     Dates: start: 20221116, end: 20221116
  2. SKYRIZI [Suspect]
     Active Substance: RISANKIZUMAB-RZAA
     Dosage: WEEK 4?LAST ADMIN DATE 2022
     Route: 058
     Dates: start: 202212
  3. SKYRIZI [Suspect]
     Active Substance: RISANKIZUMAB-RZAA
     Route: 058
     Dates: start: 20230120

REACTIONS (4)
  - Retinal tear [Recovering/Resolving]
  - Retinal tear [Recovering/Resolving]
  - Retinal tear [Recovering/Resolving]
  - Retinal tear [Recovering/Resolving]

NARRATIVE: CASE EVENT DATE: 20221230
